FAERS Safety Report 10494149 (Version 1)
Quarter: 2014Q4

REPORT INFORMATION
  Report Type: Spontaneous
  Country: US (occurrence: None)
  Receive Date: 20141002
  Receipt Date: 20141002
  Transmission Date: 20150528
  Serious: Yes (Other)
  Sender: FDA-Public Use
  Company Number: None

PATIENT
  Age: 43 Year
  Sex: Male
  Weight: 108.86 kg

DRUGS (2)
  1. TIZANIDINE 6 MG APOTEX [Suspect]
     Active Substance: TIZANIDINE
     Route: 048
     Dates: start: 20140913, end: 20140915
  2. TIZANIDINE 6 MG APOTEX [Suspect]
     Active Substance: TIZANIDINE
     Indication: MUSCLE SPASTICITY
     Route: 048
     Dates: start: 20140913, end: 20140915

REACTIONS (3)
  - Muscle spasticity [None]
  - Diarrhoea [None]
  - Abdominal pain upper [None]

NARRATIVE: CASE EVENT DATE: 20140909
